FAERS Safety Report 5726658-2 (Version None)
Quarter: 2008Q2

REPORT INFORMATION
  Report Type: 
  Country: None (occurrence: None)
  Receive Date: 20080502
  Receipt Date: 20080421
  Transmission Date: 20081010
  Serious: Yes (Hospitalization)
  Sender: FDA-Public Use
  Company Number: SE-ROCHE-560095

PATIENT
  Age: 80 Year
  Sex: Male

DRUGS (10)
  1. XELODA [Suspect]
     Indication: COLORECTAL CANCER
     Dosage: DOSAGE: 2500 MG X 2; OTHER INDICATION: METASTASES
     Route: 048
     Dates: start: 20080407, end: 20080411
  2. NEXIUM [Concomitant]
     Dosage: DOSAGE: 40 MG X 1
  3. PRIMPERAN TAB [Concomitant]
     Dosage: DOSAGE: 10 MG X 3
  4. NORMORIX MITE [Concomitant]
     Dosage: DOSAGE: 2.5 MG/25 MG X 1
  5. NORMORIX MITE [Concomitant]
     Dosage: DOSAGE: 2.5 MG/25 MG X 1
  6. ENALAPRIL [Concomitant]
     Dosage: DOSAGE: 20 MG X 1
  7. PROSCAR [Concomitant]
     Dosage: DOSAGE: 5 MG X 1
  8. ACETAMINOPHEN [Concomitant]
     Dosage: DRUG NAME: PANODIL EXTEND
  9. DIAZEPAM [Concomitant]
  10. IMOVAN [Concomitant]
     Dosage: TAKEN AT NIGHT

REACTIONS (5)
  - DIARRHOEA [None]
  - DIHYDROPYRIMIDINE DEHYDROGENASE DEFICIENCY [None]
  - LOSS OF CONSCIOUSNESS [None]
  - OROPHARYNGEAL BLISTERING [None]
  - PHARYNGOLARYNGEAL PAIN [None]
